FAERS Safety Report 6122190-5 (Version None)
Quarter: 2009Q1

REPORT INFORMATION
  Report Type: 
  Country: None (occurrence: None)
  Receive Date: 20090316
  Receipt Date: 20090316
  Transmission Date: 20090719
  Serious: Yes (Life-Threatening)
  Sender: FDA-Public Use
  Company Number: None

PATIENT
  Age: 43 Year
  Sex: Female
  Weight: 97.5234 kg

DRUGS (1)
  1. ULTRACET [Suspect]
     Indication: BACK PAIN
     Dosage: 1 TAB 4-6 HOURS PO
     Route: 048
     Dates: start: 20090313, end: 20090314

REACTIONS (4)
  - CHEST DISCOMFORT [None]
  - DYSPEPSIA [None]
  - ERUCTATION [None]
  - PHARYNGEAL OEDEMA [None]
